FAERS Safety Report 7292563 (Version 2)
Quarter: 2013Q4

REPORT INFORMATION
  Report Type: Spontaneous
  Country: US (occurrence: None)
  Receive Date: 20100203
  Receipt Date: 20131216
  Transmission Date: 20140711
  Serious: Yes (Other)
  Sender: FDA-Public Use
  Company Number: 2010S1000448

PATIENT
  Age: 53 Year
  Sex: Female
  Weight: 147.5 kg

DRUGS (11)
  1. PHOSPHO-SODA [Suspect]
     Indication: COLONOSCOPY
     Dosage: 90 ML; TOTAL; PO
     Route: 048
     Dates: start: 20080520
  2. MAGNESIUM CITRATE (MAGNESIUIM CITRATE) [Suspect]
     Indication: COLONOSCOPY
     Route: 048
     Dates: start: 20080519, end: 20080519
  3. ZOCOR (SIMVASTATIN) [Concomitant]
  4. TOPAMAX (TOPIRAMATE) [Concomitant]
  5. AMILORIDE HYDROCHLOROTHIAZIDE (HYDROCHLOROTHIAZIDE) [Concomitant]
  6. ATACAND (CANDESARTAN CILEXETIL) [Concomitant]
  7. LEXAPRO ESCITALOPRAM OXALATE) [Concomitant]
  8. PROMETRIUM (PROGESTERONE) [Concomitant]
  9. PROPOXYPHENE (DEXTRO PROPOXYPHENE) [Concomitant]
  10. SYNTEST D.S. (METHYLTESTOSTERONE, ESTROGENS ESTERIFIED) [Concomitant]
  11. MOTRIN (IBUPROFEN) [Concomitant]

REACTIONS (6)
  - Renal disorder [None]
  - Blindness [None]
  - Balance disorder [None]
  - Dizziness postural [None]
  - Inappropriate schedule of drug administration [None]
  - Drug prescribing error [None]
